FAERS Safety Report 16686507 (Version 1)
Quarter: 2019Q3

REPORT INFORMATION
  Report Type: Spontaneous
  Country: IT (occurrence: IT)
  Receive Date: 20190809
  Receipt Date: 20190809
  Transmission Date: 20191004
  Serious: Yes (Other)
  Sender: FDA-Public Use
  Company Number: IT-TEVA-2019-IT-1090396

PATIENT
  Age: 71 Year
  Sex: Female

DRUGS (6)
  1. ACETYLSALICYLIC ACID [Concomitant]
     Active Substance: ASPIRIN
  2. TOFACITINIB [Suspect]
     Active Substance: TOFACITINIB
     Indication: RHEUMATOID ARTHRITIS
     Dosage: 10 MG PER DAY
     Route: 048
     Dates: start: 20180720, end: 20190619
  3. METHOTREXATE. [Suspect]
     Active Substance: METHOTREXATE
     Indication: RHEUMATOID ARTHRITIS
     Dosage: 7.5MG PER WEEK
     Route: 030
     Dates: start: 20181121, end: 20190619
  4. LANSOX [Concomitant]
     Active Substance: LANSOPRAZOLE
  5. BIFRIZIDE [Concomitant]
     Active Substance: HYDROCHLOROTHIAZIDE
  6. DIBASE [Concomitant]
     Active Substance: CHOLECALCIFEROL

REACTIONS (1)
  - Pneumonitis [Recovered/Resolved]

NARRATIVE: CASE EVENT DATE: 20190619
